FAERS Safety Report 7305340-4 (Version None)
Quarter: 2011Q1

REPORT INFORMATION
  Report Type: 
  Country: None (occurrence: None)
  Receive Date: 20110222
  Receipt Date: 20110209
  Transmission Date: 20110831
  Serious: Yes (Other)
  Sender: FDA-Public Use
  Company Number: PHHY2011US11393

PATIENT
  Sex: Female

DRUGS (4)
  1. PREDNISONE [Suspect]
  2. METHOTREXATE [Suspect]
  3. TEKTURNA [Suspect]
  4. SLEEP PILL [Concomitant]

REACTIONS (8)
  - DIZZINESS [None]
  - LOSS OF CONSCIOUSNESS [None]
  - BLOOD PRESSURE INCREASED [None]
  - HEAD INJURY [None]
  - JOINT SWELLING [None]
  - FOOD POISONING [None]
  - WEIGHT INCREASED [None]
  - SWELLING FACE [None]
